FAERS Safety Report 5160086-6 (Version None)
Quarter: 2006Q4

REPORT INFORMATION
  Report Type: 
  Country: None (occurrence: None)
  Receive Date: 20061129
  Receipt Date: 20060920
  Transmission Date: 20070319
  Serious: No
  Sender: FDA-Public Use
  Company Number: US-GLAXOSMITHKLINE-A0620855A

PATIENT
  Age: 73 Year
  Sex: Female

DRUGS (4)
  1. WELLBUTRIN SR [Suspect]
     Indication: DEPRESSION
     Dosage: 150MG TWICE PER DAY
     Route: 048
     Dates: start: 20060909, end: 20060911
  2. PAROXETINE HCL [Suspect]
     Indication: DEPRESSION
     Dosage: 20MG PER DAY
     Route: 048
     Dates: end: 20060906
  3. TAMOXIFEN CITRATE [Concomitant]
  4. LOVASTATIN [Concomitant]

REACTIONS (10)
  - ASTHENIA [None]
  - DRUG INEFFECTIVE [None]
  - DYSGEUSIA [None]
  - FATIGUE [None]
  - HYPERCHLORHYDRIA [None]
  - ILL-DEFINED DISORDER [None]
  - INSOMNIA [None]
  - NAUSEA [None]
  - NIGHT SWEATS [None]
  - VOMITING [None]
